FAERS Safety Report 8173880-4 (Version None)
Quarter: 2012Q1

REPORT INFORMATION
  Report Type: 
  Country: None (occurrence: None)
  Receive Date: 20120229
  Receipt Date: 20120216
  Transmission Date: 20120608
  Serious: Yes (Death, Other)
  Sender: FDA-Public Use
  Company Number: US-ELI_LILLY_AND_COMPANY-US201202001526

PATIENT
  Sex: Female
  Weight: 77.098 kg

DRUGS (1)
  1. CYMBALTA [Suspect]
     Indication: PAIN
     Dosage: UNK, UNKNOWN
     Dates: start: 20100201

REACTIONS (6)
  - FALL [None]
  - IMPULSIVE BEHAVIOUR [None]
  - HEAD INJURY [None]
  - IRRITABILITY [None]
  - ANXIETY [None]
  - MULTIPLE SCLEROSIS RELAPSE [None]
